FAERS Safety Report 4942953-9 (Version None)
Quarter: 2006Q1

REPORT INFORMATION
  Report Type: 
  Country: None (occurrence: None)
  Receive Date: 20060314
  Receipt Date: 20060201
  Transmission Date: 20060701
  Serious: Yes (Hospitalization)
  Sender: FDA-Public Use
  Company Number: US-AMGEN-US167260

PATIENT
  Sex: Female

DRUGS (15)
  1. ENBREL [Suspect]
     Indication: RHEUMATOID ARTHRITIS
     Route: 058
     Dates: start: 20030101, end: 20051201
  2. VOLTAREN [Suspect]
     Route: 048
     Dates: start: 20041101, end: 20051201
  3. PREDNISONE [Concomitant]
     Route: 048
     Dates: start: 20021201
  4. PREDNISONE [Concomitant]
     Route: 065
     Dates: start: 20050101
  5. ADVAIR DISKUS 100/50 [Concomitant]
     Route: 055
     Dates: start: 20041101
  6. SPIRIVA [Concomitant]
     Route: 065
     Dates: start: 20041101
  7. ZOLOFT [Concomitant]
     Route: 065
     Dates: start: 20051101
  8. SINGULAIR [Concomitant]
     Route: 065
     Dates: start: 20041101
  9. NEXIUM [Concomitant]
     Route: 065
     Dates: start: 20021201
  10. ZYRTEC [Concomitant]
     Route: 065
     Dates: start: 20021201, end: 20051201
  11. LIPITOR [Concomitant]
     Route: 065
     Dates: start: 20021201, end: 20051201
  12. ALBUTEROL [Concomitant]
     Route: 055
  13. DETROL [Concomitant]
     Route: 065
  14. PREMARIN [Concomitant]
     Route: 065
  15. MULTIVITAMIN [Concomitant]
     Route: 065

REACTIONS (6)
  - ANTINEUTROPHIL CYTOPLASMIC ANTIBODY POSITIVE [None]
  - GLOMERULONEPHRITIS [None]
  - PNEUMONIA [None]
  - PYELONEPHRITIS [None]
  - URINARY TRACT INFECTION [None]
  - VASCULITIS [None]
